FAERS Safety Report 16340104 (Version 1)
Quarter: 2019Q2

REPORT INFORMATION
  Report Type: Spontaneous
  Country: PT (occurrence: PT)
  Receive Date: 20190522
  Receipt Date: 20190522
  Transmission Date: 20190711
  Serious: Yes (Hospitalization, Other)
  Sender: FDA-Public Use
  Company Number: PT-AXELLIA-002460

PATIENT
  Age: 18 Month
  Sex: Male
  Weight: 8.3 kg

DRUGS (7)
  1. AMPHOTERICIN B/AMPHOTERICIN B/LIPOSOME [Suspect]
     Active Substance: AMPHOTERICIN B
     Indication: PSEUDOMONAS INFECTION
     Dosage: STARTED 3DAYS AFTER FINISHING THE FIRST COURSE OF ANTIBIOTICS(ON DAY 16 OF HOSPITALIZATION).
     Route: 042
  2. PIPERACILLIN/TAZOBACTAM [Suspect]
     Active Substance: PIPERACILLIN SODIUM\TAZOBACTAM SODIUM
     Indication: CANDIDA INFECTION
     Dosage: FIRST ADMNISTRATION ON DAY 25 OF  HOSPITALIZATION- THIRD ANTIBIOTIC CYCLE
     Route: 042
  3. GENTAMICIN/GENTAMICIN SULFATE [Suspect]
     Active Substance: GENTAMICIN SULFATE
     Indication: DEVICE RELATED INFECTION
     Dosage: FIRST ADMNISTRATION( ON DAY 1 OF HOSPITALIZATION)
     Route: 042
  4. METRONIDAZOLE. [Suspect]
     Active Substance: METRONIDAZOLE
     Indication: DEVICE RELATED INFECTION
     Dosage: UNK
     Route: 042
  5. VANCOMYCIN [Suspect]
     Active Substance: VANCOMYCIN
     Indication: CANDIDA INFECTION
     Dosage: FIRST ADMNISTRATION ON DAY 25 OF  HOSPITALIZATION- THIRD ANTIBIOTIC CYCLE
     Route: 042
  6. FLUCONAZOLE. [Suspect]
     Active Substance: FLUCONAZOLE
     Indication: CANDIDA INFECTION
     Dosage: FIRST ADMNISTRATION ON DAY 25 OF  HOSPITALIZATION- THIRD ANTIBIOTIC CYCLE
     Route: 042
  7. CEFTAZIDIME/CEFTAZIDIME PENTAHYDRATE [Suspect]
     Active Substance: CEFTAZIDIME
     Indication: PSEUDOMONAS INFECTION
     Dosage: STARTED 3 DAYS AFTER FINISHING THE FIRST COURSE OF ANTIBIOTICS ( ON DAY 16 OF HOSPITALIZATION).
     Route: 042

REACTIONS (10)
  - Product use issue [Unknown]
  - Weight increased [Recovering/Resolving]
  - Acute kidney injury [Recovering/Resolving]
  - Metabolic acidosis [Recovering/Resolving]
  - Ascites [Recovering/Resolving]
  - Nephropathy toxic [Recovering/Resolving]
  - Respiratory alkalosis [Recovering/Resolving]
  - Pleural effusion [Recovering/Resolving]
  - Oliguria [Recovering/Resolving]
  - Generalised oedema [Recovering/Resolving]
